FAERS Safety Report 25555017 (Version 3)
Quarter: 2025Q3

REPORT INFORMATION
  Report Type: Spontaneous
  Country: US (occurrence: US)
  Receive Date: 20250715
  Receipt Date: 20250819
  Transmission Date: 20251020
  Serious: Yes (Other)
  Sender: BAUSCH AND LOMB
  Company Number: US-BAUSCH-BH-2025-014531

PATIENT
  Age: 86 Year
  Sex: Female

DRUGS (1)
  1. PRIMIDONE [Suspect]
     Active Substance: PRIMIDONE
     Indication: Seizure
     Route: 065

REACTIONS (4)
  - Seizure [Unknown]
  - Loss of consciousness [Unknown]
  - Hallucinations, mixed [Unknown]
  - Illness [Unknown]
